FAERS Safety Report 9051051 (Version 2)
Quarter: 2013Q1

REPORT INFORMATION
  Report Type: Spontaneous
  Country: PH (occurrence: PH)
  Receive Date: 20130205
  Receipt Date: 20130303
  Transmission Date: 20140127
  Serious: Yes (Death, Life-Threatening, Hospitalization)
  Sender: FDA-Public Use
  Company Number: PH-009507513-1301PHL013809

PATIENT
  Age: 86 Year
  Sex: Female

DRUGS (2)
  1. JANUVIA [Suspect]
     Dosage: UNK, QD
     Route: 048
     Dates: start: 20130117, end: 20130131
  2. INSULIN [Concomitant]

REACTIONS (4)
  - Cardiac arrest [Unknown]
  - Death [Fatal]
  - Transfusion [Unknown]
  - Heart rate decreased [Unknown]
